FAERS Safety Report 7501612-9 (Version None)
Quarter: 2011Q2

REPORT INFORMATION
  Report Type: 
  Country: None (occurrence: None)
  Receive Date: 20110524
  Receipt Date: 20110513
  Transmission Date: 20111010
  Serious: Yes (Hospitalization, Other)
  Sender: FDA-Public Use
  Company Number: US-RB-023574-11

PATIENT
  Age: 48 Year
  Sex: Female

DRUGS (1)
  1. SUBOXONE [Suspect]
     Indication: PRODUCT USED FOR UNKNOWN INDICATION
     Dosage: SUBLINGUAL FILM- DOSING INFORMATION UNKNOWN
     Route: 065

REACTIONS (11)
  - BLOOD IRON DECREASED [None]
  - APATHY [None]
  - MENTAL DISORDER [None]
  - DEPRESSION [None]
  - ANAEMIA [None]
  - BACK PAIN [None]
  - ARTHRALGIA [None]
  - NASOPHARYNGITIS [None]
  - FATIGUE [None]
  - PAIN [None]
  - ASTHENIA [None]
